FAERS Safety Report 25428862 (Version 1)
Quarter: 2025Q2

REPORT INFORMATION
  Report Type: Spontaneous
  Country: CN (occurrence: CN)
  Receive Date: 20250612
  Receipt Date: 20250612
  Transmission Date: 20250716
  Serious: Yes (Life-Threatening, Other)
  Sender: BAYER HEALTHCARE PHARMACEUTICALS INC.
  Company Number: CN-BAYER-2025A078034

PATIENT
  Age: 76 Year
  Sex: Female
  Weight: 45 kg

DRUGS (1)
  1. ULTRAVIST [Suspect]
     Active Substance: IOPROMIDE
     Indication: Computerised tomogram
     Route: 042
     Dates: start: 20250609, end: 20250609

REACTIONS (6)
  - Cardiac arrest [Recovering/Resolving]
  - Depressed level of consciousness [None]
  - Agonal respiration [None]
  - Pallor [None]
  - Cyanosis [None]
  - Urinary incontinence [None]

NARRATIVE: CASE EVENT DATE: 20250609
